FAERS Safety Report 16074507 (Version 4)
Quarter: 2019Q2

REPORT INFORMATION
  Report Type: Report from Study
  Country: RO (occurrence: RO)
  Receive Date: 20190314
  Receipt Date: 20190423
  Transmission Date: 20190711
  Serious: Yes (Death, Hospitalization, Other)
  Sender: FDA-Public Use
  Company Number: RO-GILEAD-2019-0396234

PATIENT
  Age: 56 Year
  Sex: Male

DRUGS (3)
  1. INSULINA [INSULIN] [Concomitant]
     Indication: DIABETES MELLITUS
  2. LEDIPASVIR/SOFOSBUVIR [Suspect]
     Active Substance: LEDIPASVIR\SOFOSBUVIR
     Indication: HEPATIC CIRRHOSIS
  3. LEDIPASVIR/SOFOSBUVIR [Suspect]
     Active Substance: LEDIPASVIR\SOFOSBUVIR
     Indication: HEPATITIS C
     Dosage: 1 DF, QD
     Route: 048
     Dates: start: 20181209, end: 201902

REACTIONS (26)
  - Upper gastrointestinal haemorrhage [Unknown]
  - Coagulopathy [Unknown]
  - Mucosal discolouration [Unknown]
  - Coma [Recovered/Resolved]
  - Enterococcal infection [Unknown]
  - Cerebral atrophy [Unknown]
  - Respiratory failure [Unknown]
  - Seminal vesicular disorder [Unknown]
  - Renal impairment [Unknown]
  - Ascites [Unknown]
  - Oesophageal varices haemorrhage [Unknown]
  - Haematemesis [Unknown]
  - Nervous system disorder [Unknown]
  - Respiratory disorder [Unknown]
  - Blood disorder [Unknown]
  - Mesenteric vein thrombosis [Unknown]
  - Hepatic function abnormal [Unknown]
  - Cardiac arrest [Fatal]
  - Splenomegaly [Unknown]
  - Oedema peripheral [Unknown]
  - Melaena [Unknown]
  - Pallor [Unknown]
  - Gastric haemorrhage [Unknown]
  - Carotid arteriosclerosis [Unknown]
  - Pleural effusion [Unknown]
  - Cerebellar atrophy [Unknown]

NARRATIVE: CASE EVENT DATE: 201902
